FAERS Safety Report 21458920 (Version 1)
Quarter: 2022Q4

REPORT INFORMATION
  Report Type: Spontaneous
  Country: PL (occurrence: PL)
  Receive Date: 20221014
  Receipt Date: 20221014
  Transmission Date: 20230112
  Serious: Yes (Other)
  Sender: FDA-Public Use
  Company Number: PL-HALEON-PLCH2022EME035082

PATIENT
  Age: 60 Year
  Sex: Male

DRUGS (14)
  1. FUROSEMIDE [Suspect]
     Active Substance: FUROSEMIDE
     Indication: Cardiac failure chronic
     Dosage: 20-40 MG
     Route: 065
  2. FUROSEMIDE [Suspect]
     Active Substance: FUROSEMIDE
     Dosage: UNK (20-40 MG)
     Route: 065
  3. APIXABAN [Suspect]
     Active Substance: APIXABAN
     Indication: Cardiac failure chronic
     Dosage: 5 MG, QD
     Route: 065
  4. APIXABAN [Suspect]
     Active Substance: APIXABAN
     Dosage: 5 MG, QD , 1 EVERY 1 DAY
     Route: 065
  5. RAMIPRIL [Suspect]
     Active Substance: RAMIPRIL
     Indication: Cardiac failure chronic
     Dosage: 2.5 MG, QD
     Route: 065
  6. PANTOPRAZOLE SODIUM [Suspect]
     Active Substance: PANTOPRAZOLE SODIUM
     Indication: Cardiac failure chronic
     Dosage: UNK
     Route: 065
  7. ROSUVASTATIN CALCIUM [Suspect]
     Active Substance: ROSUVASTATIN CALCIUM
     Indication: Cardiac failure chronic
     Dosage: 40 MG, QD , 1 EVERY 1 DAY
     Route: 065
  8. TORSEMIDE [Suspect]
     Active Substance: TORSEMIDE
     Indication: Cardiac failure chronic
     Dosage: 10 MG
     Route: 065
  9. BISOPROLOL [Suspect]
     Active Substance: BISOPROLOL
     Indication: Cardiac failure chronic
     Dosage: 2.5 MG,  1 EVERY 1 DAY
     Route: 065
  10. ASPIRIN [Suspect]
     Active Substance: ASPIRIN
     Indication: Cardiac failure chronic
     Dosage: 75 MG, QD
     Route: 065
  11. FUROSEMIDE [Suspect]
     Active Substance: FUROSEMIDE
     Indication: Cardiac failure chronic
     Dosage: UNK , 20-40 MG
  12. CLOPIDOGREL [Suspect]
     Active Substance: CLOPIDOGREL BISULFATE
     Indication: Cardiac failure chronic
     Dosage: 75 MG, QD
     Route: 065
  13. ENTRESTO [Concomitant]
     Active Substance: SACUBITRIL\VALSARTAN
     Indication: Product used for unknown indication
     Dosage: UNK
  14. ENTRESTO [Concomitant]
     Active Substance: SACUBITRIL\VALSARTAN
     Indication: Product used for unknown indication
     Dosage: UNK , 49/51 MG / ,  24/26

REACTIONS (5)
  - Cardiac failure [None]
  - Myocardial infarction [None]
  - Atrial fibrillation [None]
  - Dyslipidaemia [None]
  - Off label use [None]
